FAERS Safety Report 7087367-3 (Version None)
Quarter: 2010Q4

REPORT INFORMATION
  Report Type: 
  Country: None (occurrence: None)
  Receive Date: 20101108
  Receipt Date: 20101029
  Transmission Date: 20110411
  Serious: Yes (Hospitalization, Other)
  Sender: FDA-Public Use
  Company Number: US-BIOGENIDEC-2010BI035194

PATIENT
  Age: 47 Year
  Sex: Female
  Weight: 71 kg

DRUGS (1)
  1. AVONEX [Suspect]
     Indication: MULTIPLE SCLEROSIS
     Route: 030
     Dates: start: 20100817, end: 20101001

REACTIONS (6)
  - ABASIA [None]
  - ADVERSE REACTION [None]
  - APHASIA [None]
  - MULTIPLE SCLEROSIS RELAPSE [None]
  - MYDRIASIS [None]
  - URINARY TRACT INFECTION [None]
